FAERS Safety Report 22787630 (Version 4)
Quarter: 2025Q2

REPORT INFORMATION
  Report Type: Spontaneous
  Country: GB (occurrence: GB)
  Receive Date: 20230804
  Receipt Date: 20250625
  Transmission Date: 20250716
  Serious: Yes (Hospitalization, Other)
  Sender: JOHNSON AND JOHNSON
  Company Number: GB-MYLANLABS-2023M1078418

PATIENT
  Age: 38 Year
  Sex: Male

DRUGS (73)
  1. RISPERDAL [Suspect]
     Active Substance: RISPERIDONE
     Indication: Product used for unknown indication
     Route: 065
     Dates: start: 201302
  2. RISPERDAL [Suspect]
     Active Substance: RISPERIDONE
     Route: 065
     Dates: start: 200210
  3. RISPERDAL [Suspect]
     Active Substance: RISPERIDONE
  4. RISPERDAL [Suspect]
     Active Substance: RISPERIDONE
  5. RISPERDAL [Suspect]
     Active Substance: RISPERIDONE
  6. RISPERDAL [Suspect]
     Active Substance: RISPERIDONE
  7. HALDOL [Suspect]
     Active Substance: HALOPERIDOL
     Indication: Product used for unknown indication
     Route: 065
  8. AMISULPRIDE [Suspect]
     Active Substance: AMISULPRIDE
     Indication: Affective disorder
     Dosage: 200 MILLIGRAM, QD (200MG DAILY START DATE: JAN-2003)
     Route: 050
     Dates: start: 200301
  9. AMISULPRIDE [Suspect]
     Active Substance: AMISULPRIDE
     Dosage: 100 MILLIGRAM, QD (100MG DAILY START DATE: JUL-2003)
     Route: 050
     Dates: start: 200307
  10. AMISULPRIDE [Suspect]
     Active Substance: AMISULPRIDE
     Dosage: UNKNOWN DOSE IN THE MORNING, 100MG IN THE EVENING START DATE: NOV-2003
     Route: 050
     Dates: start: 200311
  11. AMISULPRIDE [Suspect]
     Active Substance: AMISULPRIDE
     Dosage: 100 MILLIGRAM, QD (100MG DAILY START DATE: JUL-2004)
     Route: 050
     Dates: start: 200407
  12. AMISULPRIDE [Suspect]
     Active Substance: AMISULPRIDE
     Dosage: 50 MILLIGRAM, QD (50MG DAILY START DATE: MAY-2005)
     Route: 050
     Dates: start: 200505
  13. AMISULPRIDE [Suspect]
     Active Substance: AMISULPRIDE
     Dosage: 50 MILLIGRAM, BID (50MG TWICE DAILY START DATE:-2013)
     Dates: start: 2013
  14. AMISULPRIDE [Suspect]
     Active Substance: AMISULPRIDE
     Dosage: 200 MILLIGRAM, BID (200MG TWICE DAILY START DATE: SEP-2015)
     Route: 050
     Dates: start: 201509
  15. AMISULPRIDE [Suspect]
     Active Substance: AMISULPRIDE
     Dosage: 200MG IN THE MORNING, 600MG AT NIGHT START DATE: JUN-2016
     Route: 050
     Dates: start: 201606
  16. AMISULPRIDE [Suspect]
     Active Substance: AMISULPRIDE
     Dosage: 100MG IN THE MORNING, 400MG AT NIGHT START DATE: JUL-2016
     Dates: start: 201607
  17. AMISULPRIDE [Suspect]
     Active Substance: AMISULPRIDE
     Route: 050
     Dates: start: 201605
  18. AMISULPRIDE [Suspect]
     Active Substance: AMISULPRIDE
     Route: 050
     Dates: start: 202201
  19. AMISULPRIDE [Suspect]
     Active Substance: AMISULPRIDE
     Route: 050
     Dates: start: 200411
  20. AMISULPRIDE [Suspect]
     Active Substance: AMISULPRIDE
     Dosage: 50 MILLIGRAM, BID (50MG TWICE DAILY START DATE: JUL-2014)
     Route: 065
     Dates: start: 201407, end: 201503
  21. CITALOPRAM [Suspect]
     Active Substance: CITALOPRAM
     Indication: Depressed mood
     Dosage: 20 MILLIGRAM, QD (20MG DAILY START DATE: JUL-2004)
     Route: 065
  22. CITALOPRAM [Suspect]
     Active Substance: CITALOPRAM
     Dosage: 20 MILLIGRAM, QD (20MG DAILY START DATE: MAY-2005)
     Route: 065
  23. CITALOPRAM [Suspect]
     Active Substance: CITALOPRAM
     Dosage: 30 MILLIGRAM, QD (30MG DAILY START DATE: JUL-2014)
     Route: 065
     Dates: end: 201503
  24. CITALOPRAM [Suspect]
     Active Substance: CITALOPRAM
     Dosage: 20 MILLIGRAM, QD (20MG DAILY START DATE: JAN-2003)
     Route: 065
  25. CITALOPRAM [Suspect]
     Active Substance: CITALOPRAM
     Dosage: 20 MILLIGRAM, QD (20MG DAILY START DATE: NOV-2004)
     Route: 065
  26. CITALOPRAM [Suspect]
     Active Substance: CITALOPRAM
     Route: 065
  27. CITALOPRAM [Suspect]
     Active Substance: CITALOPRAM
     Dosage: 20 MILLIGRAM, QD (20MG DAILY START DATE: NOV-2003)
     Route: 065
  28. LORAZEPAM [Suspect]
     Active Substance: LORAZEPAM
     Indication: Product used for unknown indication
     Dosage: 1 MILLIGRAM, BID ( (PO/IM) 1-2MG (MAX 4MG IN 24 HOURS START DATE: ??-SEP-2015)
     Route: 065
  29. CARIPRAZINE [Suspect]
     Active Substance: CARIPRAZINE
     Indication: Product used for unknown indication
     Dosage: 3 MILLIGRAM, QD (3MG DAILY START DATE: AUG-2022)
     Dates: start: 202208
  30. CARIPRAZINE [Suspect]
     Active Substance: CARIPRAZINE
     Dosage: 6 MILLIGRAM, QD (6MG DAILY START DATE: DEC-2022)
     Dates: start: 202212, end: 202303
  31. CARIPRAZINE [Suspect]
     Active Substance: CARIPRAZINE
     Dosage: 6 MILLIGRAM, QD (6MG DAILY START DATE: MAR-2023)
     Dates: start: 202303, end: 202305
  32. FLUPENTIXOL DECANOATE [Suspect]
     Active Substance: FLUPENTIXOL DECANOATE
     Indication: Product used for unknown indication
     Dosage: 200 MILLIGRAM, QW (200MG WEEKLY START DATE:MAR-2023)
     Dates: start: 202303, end: 202305
  33. FLUPENTIXOL DECANOATE [Suspect]
     Active Substance: FLUPENTIXOL DECANOATE
     Dosage: 400 MILLIGRAM, QW (400MG WEEKLY START DATE: AUG-2022)
     Dates: start: 202208
  34. FLUPENTIXOL DECANOATE [Suspect]
     Active Substance: FLUPENTIXOL DECANOATE
     Dosage: 200 MILLIGRAM, QW (200MG WEEKLY START DATE: DEC-2022)
     Dates: start: 202212, end: 202303
  35. VALPROATE SODIUM [Suspect]
     Active Substance: VALPROATE SODIUM
     Indication: Product used for unknown indication
     Dosage: 750 MILLIGRAM, BID (750MG TWICE DAILY START DATE: MAY-2016)
     Dates: start: 201605
  36. VALPROATE SODIUM [Suspect]
     Active Substance: VALPROATE SODIUM
     Dosage: 500 MILLIGRAM, BID (500MG TWICE DAILY START DATE:JUL-2016)
     Dates: start: 201607
  37. VALPROATE SODIUM [Suspect]
     Active Substance: VALPROATE SODIUM
     Dosage: 750 MILLIGRAM, BID (750MG TWICE DAILY START DATE: JUN-2016)
     Dates: start: 201606
  38. VALPROATE SODIUM [Suspect]
     Active Substance: VALPROATE SODIUM
     Dosage: 750 MILLIGRAM, BID (750MG TWICE DAILY START DATE:MAR-2023)
     Dates: start: 202303, end: 202305
  39. FERROUS SULFATE [Suspect]
     Active Substance: FERROUS SULFATE
     Indication: Product used for unknown indication
     Route: 065
  40. CLOZARIL [Suspect]
     Active Substance: CLOZAPINE
     Indication: Product used for unknown indication
     Dosage: 450 MILLIGRAM, QD (450MG AT NIGHT START DATE:-2019)
     Route: 065
  41. CLOZARIL [Suspect]
     Active Substance: CLOZAPINE
     Indication: Schizophrenia
     Route: 065
  42. CLOZARIL [Suspect]
     Active Substance: CLOZAPINE
     Indication: Schizoaffective disorder
     Dosage: 325 MILLIGRAM, QD (325MG IN THE EVENING START DATE: -JUN-2008)
     Route: 065
  43. CLOZARIL [Suspect]
     Active Substance: CLOZAPINE
     Dosage: 375 MILLIGRAM, QD (375MG IN THE EVENING START DATE:-MAY-2006
     Route: 065
  44. CLOZARIL [Suspect]
     Active Substance: CLOZAPINE
     Route: 065
  45. CLOZARIL [Suspect]
     Active Substance: CLOZAPINE
     Dosage: 225 MILLIGRAM, BID (225MG TWICE DAILY START DATE: -OCT-2019)
     Route: 065
  46. CLOZARIL [Suspect]
     Active Substance: CLOZAPINE
     Dosage: 400 MILLIGRAM, QD (400MG AT NIGHT) START DATE: -JAN-2017
     Route: 065
  47. CLOZARIL [Suspect]
     Active Substance: CLOZAPINE
     Dosage: 200 MILLIGRAM, QD (200MG IN THE EVENING START DATE: -DEC-2010)
     Route: 065
  48. CLOZARIL [Suspect]
     Active Substance: CLOZAPINE
     Route: 048
  49. CLOZARIL [Suspect]
     Active Substance: CLOZAPINE
     Dosage: 500 MILLIGRAM, QD (500MG DAILY START DATE: -2013)
     Route: 065
  50. CLOZARIL [Suspect]
     Active Substance: CLOZAPINE
     Dosage: 225 MILLIGRAM, QD (225MG IN THE EVENING START DATE: -AUG-2010)
     Route: 065
  51. CLOZARIL [Suspect]
     Active Substance: CLOZAPINE
     Dosage: 350 MILLIGRAM, QD (350MG IN THE EVENING START DATE: -MAY-2006)
     Route: 065
  52. CLOZARIL [Suspect]
     Active Substance: CLOZAPINE
     Route: 065
  53. CLOZARIL [Suspect]
     Active Substance: CLOZAPINE
     Route: 065
  54. CLOZARIL [Suspect]
     Active Substance: CLOZAPINE
     Dosage: 250 MILLIGRAM, QD (250MG IN THE EVENING START DATE: -SEP-2009)
     Route: 065
  55. CLOZARIL [Suspect]
     Active Substance: CLOZAPINE
     Route: 065
  56. CLOZARIL [Suspect]
     Active Substance: CLOZAPINE
     Route: 065
  57. CLOZARIL [Suspect]
     Active Substance: CLOZAPINE
     Route: 065
  58. CLOZARIL [Suspect]
     Active Substance: CLOZAPINE
     Route: 065
  59. CLOZARIL [Suspect]
     Active Substance: CLOZAPINE
     Route: 065
  60. CLOZARIL [Suspect]
     Active Substance: CLOZAPINE
     Route: 065
  61. CLOZARIL [Suspect]
     Active Substance: CLOZAPINE
     Route: 065
  62. CLOZARIL [Suspect]
     Active Substance: CLOZAPINE
     Route: 065
  63. CLOZARIL [Suspect]
     Active Substance: CLOZAPINE
     Dosage: 275 MILLIGRAM, QD (275MG IN THE EVENING START DATE: -NOV-2008)
     Route: 065
  64. CLOZARIL [Suspect]
     Active Substance: CLOZAPINE
     Route: 065
  65. CHOLECALCIFEROL [Concomitant]
     Active Substance: CHOLECALCIFEROL
     Indication: Product used for unknown indication
     Dosage: 800 INTERNATIONAL UNIT, QD (800 UNITS ONCE DAILY)
     Route: 065
  66. FLEXITOL HEEL [Concomitant]
     Indication: Product used for unknown indication
     Route: 065
  67. LACTULOSE [Concomitant]
     Active Substance: LACTULOSE
     Indication: Product used for unknown indication
     Route: 065
  68. ACETAMINOPHEN [Concomitant]
     Active Substance: ACETAMINOPHEN
     Indication: Product used for unknown indication
     Route: 065
  69. PROCYCLIDINE [Concomitant]
     Active Substance: PROCYCLIDINE
     Indication: Product used for unknown indication
     Route: 065
  70. PROMETHAZINE [Concomitant]
     Active Substance: PROMETHAZINE HYDROCHLORIDE
     Indication: Product used for unknown indication
     Route: 065
  71. THIAMINE [Concomitant]
     Active Substance: THIAMINE
     Indication: Product used for unknown indication
     Dosage: 100 MILLIGRAM, BID (100MG TWICE DAILY)
     Route: 065
  72. FOLIC ACID\IRON\MINERALS\VITAMINS [Concomitant]
     Active Substance: FOLIC ACID\IRON\MINERALS\VITAMINS
     Indication: Product used for unknown indication
     Dosage: 1 DOSAGE FORM, QD (ONE TABLET ONCE DAILY)
     Route: 065
  73. PABRINEX [ASCORBIC ACID;NICOTINAMIDE;PYRIDOXINE HYDROCHLORIDE;RIBOFLAV [Concomitant]
     Indication: Product used for unknown indication
     Dosage: 1 DOSAGE FORM, BID (ONE TABLET TWICE DAILY)
     Route: 065

REACTIONS (33)
  - Dystonia [Unknown]
  - Delusion of grandeur [Unknown]
  - Hallucination, auditory [Not Recovered/Not Resolved]
  - Neglect of personal appearance [Unknown]
  - Treatment noncompliance [Unknown]
  - Cardiac arrest [Unknown]
  - Aggression [Unknown]
  - Pneumonia aspiration [Unknown]
  - Accidental exposure to product [Unknown]
  - COVID-19 [Unknown]
  - Suicidal ideation [Unknown]
  - Delusion [Not Recovered/Not Resolved]
  - Mental impairment [Unknown]
  - Drug ineffective [Unknown]
  - Overdose [Unknown]
  - Orthostatic hypotension [Unknown]
  - Sedation [Unknown]
  - Acne [Unknown]
  - Strabismus [Unknown]
  - Psoriasis [Unknown]
  - Thinking abnormal [Not Recovered/Not Resolved]
  - Neutrophil count decreased [Not Recovered/Not Resolved]
  - Lymphocyte count decreased [Unknown]
  - Weight decreased [Unknown]
  - Eating disorder [Unknown]
  - Insomnia [Unknown]
  - Withdrawal syndrome [Unknown]
  - Slow speech [Unknown]
  - Vitamin D decreased [Unknown]
  - Red blood cell sedimentation rate decreased [Unknown]
  - Depressed mood [Unknown]
  - Blood prolactin increased [Unknown]
  - Off label use [Unknown]

NARRATIVE: CASE EVENT DATE: 20021001
